FAERS Safety Report 23383622 (Version 1)
Quarter: 2024Q1

REPORT INFORMATION
  Report Type: Spontaneous
  Country: US (occurrence: US)
  Receive Date: 20240109
  Receipt Date: 20240109
  Transmission Date: 20240410
  Serious: No
  Sender: FDA-Public Use
  Company Number: US-SA-SAC20240104000324

PATIENT
  Age: 70 Year
  Sex: Male

DRUGS (1)
  1. DUPIXENT [Suspect]
     Active Substance: DUPILUMAB
     Indication: Dermatitis atopic
     Dosage: 300 MG QD
     Route: 058

REACTIONS (5)
  - Dry skin [Unknown]
  - Furuncle [Unknown]
  - Pollakiuria [Unknown]
  - Pruritus [Unknown]
  - Inappropriate schedule of product administration [Unknown]
